FAERS Safety Report 13899157 (Version 1)
Quarter: 2017Q3

REPORT INFORMATION
  Report Type: Spontaneous
  Country: US (occurrence: US)
  Receive Date: 20170824
  Receipt Date: 20170824
  Transmission Date: 20171127
  Serious: No
  Sender: FDA-Public Use
  Company Number: GXBR2017US001857

PATIENT
  Sex: Male

DRUGS (1)
  1. CLONAZEPAM TABLETS, USP [Suspect]
     Active Substance: CLONAZEPAM
     Indication: PAIN
     Dosage: UNK
     Route: 065

REACTIONS (6)
  - Burning sensation [Unknown]
  - Disturbance in attention [Unknown]
  - Somnolence [Unknown]
  - Obsessive-compulsive disorder [Unknown]
  - Frequent bowel movements [Unknown]
  - Drug ineffective [Unknown]
